FAERS Safety Report 11367790 (Version 1)
Quarter: 2015Q3

REPORT INFORMATION
  Report Type: Spontaneous
  Country: US (occurrence: US)
  Receive Date: 20150811
  Receipt Date: 20150811
  Transmission Date: 20151125
  Serious: No
  Sender: FDA-Public Use
  Company Number: US-ELI_LILLY_AND_COMPANY-US201210007968

PATIENT
  Age: 71 Year
  Sex: Male

DRUGS (3)
  1. AXIRON [Suspect]
     Active Substance: TESTOSTERONE
     Dosage: 30 MG, QD
  2. AXIRON [Suspect]
     Active Substance: TESTOSTERONE
     Indication: BLOOD TESTOSTERONE DECREASED
     Dosage: 60 MG, QD
     Route: 061
     Dates: start: 201204
  3. CARTIA                                  /USA/ [Concomitant]
     Dosage: 180 MG, QD

REACTIONS (4)
  - Pollakiuria [Unknown]
  - Alopecia [Unknown]
  - Sleep disorder [Unknown]
  - Nocturia [Unknown]
